FAERS Safety Report 8485578-3 (Version None)
Quarter: 2012Q2

REPORT INFORMATION
  Report Type: 
  Country: None (occurrence: None)
  Receive Date: 20120627
  Receipt Date: 20120627
  Transmission Date: 20120825
  Serious: No
  Sender: FDA-Public Use
  Company Number: None

PATIENT
  Age: 22 Year
  Sex: Female

DRUGS (1)
  1. PROMETHAZINE [Suspect]
     Dosage: X1 IV BOLUS
     Route: 040

REACTIONS (1)
  - ANXIETY [None]
